FAERS Safety Report 26063883 (Version 1)
Quarter: 2025Q4

REPORT INFORMATION
  Report Type: Spontaneous
  Country: US (occurrence: US)
  Receive Date: 20251119
  Receipt Date: 20251119
  Transmission Date: 20260117
  Serious: No
  Sender: UROGEN PHARMA
  Company Number: US-UROGEN PHARMA LTD.-2025-UGN-000171

PATIENT

DRUGS (2)
  1. ZUSDURI [Suspect]
     Active Substance: MITOMYCIN
     Indication: Product used for unknown indication
     Dosage: 75 MILLIGRAM, (INSTILLATION)
     Route: 065
     Dates: start: 20250924, end: 20250924
  2. ZUSDURI [Suspect]
     Active Substance: MITOMYCIN
     Dosage: 80 MILLIGRAM, (INSTILLATION)
     Route: 065
     Dates: start: 2025, end: 2025

REACTIONS (1)
  - Incorrect dose administered [Unknown]

NARRATIVE: CASE EVENT DATE: 20250924
